FAERS Safety Report 21469751 (Version 1)
Quarter: 2022Q4

REPORT INFORMATION
  Report Type: Spontaneous
  Country: FR (occurrence: FR)
  Receive Date: 20221018
  Receipt Date: 20221018
  Transmission Date: 20230113
  Serious: Yes (Hospitalization, Other)
  Sender: FDA-Public Use
  Company Number: None

PATIENT
  Age: 60 Year
  Sex: Male
  Weight: 73 kg

DRUGS (3)
  1. YERVOY [Suspect]
     Active Substance: IPILIMUMAB
     Indication: Lung neoplasm malignant
     Dosage: 78MG (1MG/KG) TOUS LES 21 JOURS
     Route: 042
     Dates: start: 20210108, end: 20210219
  2. OPDIVO [Suspect]
     Active Substance: NIVOLUMAB
     Indication: Large cell lung cancer metastatic
     Dosage: 243 MG (31MG/KG) TOUS LES 21 JOURS
     Route: 042
     Dates: start: 20210108, end: 20210219
  3. LIPTRUZET [Concomitant]
     Active Substance: ATORVASTATIN CALCIUM\EZETIMIBE

REACTIONS (3)
  - Diabetes mellitus [Not Recovered/Not Resolved]
  - Immune-mediated hypophysitis [Not Recovered/Not Resolved]
  - Myositis [Not Recovered/Not Resolved]

NARRATIVE: CASE EVENT DATE: 20210301
